FAERS Safety Report 9616963 (Version 2)
Quarter: 2014Q2

REPORT INFORMATION
  Report Type: Report from Study
  Country: US (occurrence: US)
  Receive Date: 20131011
  Receipt Date: 20140619
  Transmission Date: 20141212
  Serious: Yes (Hospitalization)
  Sender: FDA-Public Use
  Company Number: US-ACTELION-A-NJ2013-89438

PATIENT
  Age: 81 Year
  Sex: Female

DRUGS (14)
  1. TRACLEER [Suspect]
     Indication: PULMONARY ARTERIAL HYPERTENSION
     Dosage: 125 MG, BID
     Route: 048
     Dates: start: 2007, end: 201307
  2. TRACLEER [Suspect]
     Dosage: 62.5 MG, BID
     Route: 048
     Dates: start: 2007, end: 2007
  3. TRACLEER [Suspect]
     Dosage: 125 MG, BID
     Route: 048
     Dates: start: 201307, end: 2013
  4. PRILOSEC [Concomitant]
     Dosage: 40 MG, UNK
     Dates: start: 2010
  5. FUROSEMIDE [Concomitant]
     Dosage: 40 MG, BID
     Dates: start: 2006
  6. POTASSIUM [Concomitant]
     Dosage: 20 MEQ, TID
     Dates: start: 2006
  7. DILTIAZEM [Concomitant]
     Dosage: 60 MG, TID
     Dates: start: 2010
  8. WARFARIN [Concomitant]
     Dosage: 2 MG, UNK
     Dates: start: 2006
  9. REVATIO [Concomitant]
     Dosage: 20 MG, TID
     Dates: start: 2006
  10. ASPIRIN [Concomitant]
     Dosage: 81 MG, UNK
     Dates: start: 2006
  11. ADVAIR [Concomitant]
     Dosage: UNK, BID
     Dates: start: 2010
  12. PROAIR HFA [Concomitant]
     Dosage: 1 PUFF, PRN
     Dates: start: 2010
  13. OXYGEN [Concomitant]
     Dosage: UNK
  14. ACIDOPHILUS [Concomitant]
     Dosage: 1 TABLET, UNK

REACTIONS (7)
  - Spinal fracture [Recovered/Resolved]
  - Back pain [Recovered/Resolved]
  - Stent placement [Recovered/Resolved]
  - Constipation [Recovered/Resolved]
  - Chest pain [Recovered/Resolved]
  - Hernia [Recovered/Resolved]
  - Anaemia [Recovering/Resolving]
